FAERS Safety Report 8216256 (Version 4)
Quarter: 2013Q4

REPORT INFORMATION
  Report Type: Spontaneous
  Country: US (occurrence: US)
  Receive Date: 20111031
  Receipt Date: 20131220
  Transmission Date: 20140711
  Serious: Yes (Other)
  Sender: FDA-Public Use
  Company Number: US-US-EMD SERONO, INC.-7091590

PATIENT
  Sex: Female
  Weight: 100 kg

DRUGS (5)
  1. REBIF [Suspect]
     Indication: MULTIPLE SCLEROSIS
     Route: 058
     Dates: start: 20070717
  2. REBIF [Suspect]
     Route: 058
     Dates: end: 20131031
  3. GABAPENTIN [Concomitant]
     Indication: PAIN
  4. KLONOPIN [Concomitant]
  5. MARIJUANA [Concomitant]
     Indication: PAIN

REACTIONS (10)
  - Diabetes mellitus [Recovering/Resolving]
  - Intervertebral disc protrusion [Not Recovered/Not Resolved]
  - Stress [Not Recovered/Not Resolved]
  - Anxiety [Not Recovered/Not Resolved]
  - Insomnia [Not Recovered/Not Resolved]
  - Blood cholesterol increased [Not Recovered/Not Resolved]
  - Hypertension [Not Recovered/Not Resolved]
  - Influenza [Unknown]
  - Incontinence [Not Recovered/Not Resolved]
  - Depression [Not Recovered/Not Resolved]
